FAERS Safety Report 12798406 (Version 1)
Quarter: 2016Q3

REPORT INFORMATION
  Report Type: Spontaneous
  Country: US (occurrence: US)
  Receive Date: 20160930
  Receipt Date: 20160930
  Transmission Date: 20161109
  Serious: No
  Sender: FDA-Public Use
  Company Number: None

PATIENT
  Age: 51 Year
  Sex: Female
  Weight: 50.4 kg

DRUGS (5)
  1. PROLASEC [Concomitant]
  2. NAPROXEN. [Concomitant]
     Active Substance: NAPROXEN
  3. HYOSCYAMINE SULFATE. [Suspect]
     Active Substance: HYOSCYAMINE SULFATE
     Indication: ABDOMINAL PAIN UPPER
     Dosage: ?          QUANTITY:375 TABLET(S);OTHER ROUTE:SUBLINGUAL?
  4. BRUPION [Concomitant]
  5. HYOSCYAMINE SULFATE. [Suspect]
     Active Substance: HYOSCYAMINE SULFATE
     Indication: GASTROOESOPHAGEAL REFLUX DISEASE
     Dosage: ?          QUANTITY:375 TABLET(S);OTHER ROUTE:SUBLINGUAL?

REACTIONS (5)
  - Photophobia [None]
  - Balance disorder [None]
  - Disorientation [None]
  - Heart rate increased [None]
  - Vision blurred [None]

NARRATIVE: CASE EVENT DATE: 20160430
